FAERS Safety Report 9311280 (Version 1)
Quarter: 2013Q2

REPORT INFORMATION
  Report Type: Spontaneous
  Country: US (occurrence: US)
  Receive Date: 20130528
  Receipt Date: 20130528
  Transmission Date: 20140414
  Serious: Yes (Other)
  Sender: FDA-Public Use
  Company Number: US-PFIZER INC-2013158691

PATIENT
  Age: 76 Year
  Sex: Female
  Weight: 90.7 kg

DRUGS (3)
  1. ARTHROTEC [Suspect]
     Indication: ARTHRITIS
     Dosage: 0.2/50 MG, 1X/DAY
     Route: 048
  2. ARTHROTEC [Suspect]
     Dosage: 0.2/50 MG, 2X/DAY
     Route: 048
  3. ARTHROTEC [Suspect]
     Dosage: 0.2/50 MG, 1X/DAY
     Route: 048

REACTIONS (4)
  - Arthropathy [Unknown]
  - Hypertension [Unknown]
  - Pain [Recovered/Resolved]
  - Weight abnormal [Unknown]
